FAERS Safety Report 5515763-1 (Version None)
Quarter: 2007Q4

REPORT INFORMATION
  Report Type: 
  Country: None (occurrence: None)
  Receive Date: 20071114
  Receipt Date: 20071105
  Transmission Date: 20080405
  Serious: Yes (Hospitalization)
  Sender: FDA-Public Use
  Company Number: JP-WYE-H01051807

PATIENT
  Age: 75 Year
  Sex: Female

DRUGS (5)
  1. AMIODARONE HCL [Suspect]
     Indication: VENTRICULAR TACHYCARDIA
     Route: 048
     Dates: start: 20060424
  2. AMIODARONE HCL [Suspect]
     Route: 048
     Dates: end: 20070701
  3. AMIODARONE HCL [Suspect]
     Route: 048
     Dates: start: 20070701, end: 20071024
  4. THYRADIN [Concomitant]
     Dosage: NOT PROVIDED
     Route: 065
  5. AMISALIN [Concomitant]
     Dosage: 1500 MG/FREQUENCY NOT PROVIDED
     Route: 048
     Dates: start: 20070701

REACTIONS (5)
  - CAPILLARY FRAGILITY [None]
  - CARDIAC FAILURE [None]
  - FATIGUE [None]
  - GASTRIC ULCER HAEMORRHAGE [None]
  - LUNG INFILTRATION [None]
